FAERS Safety Report 4346452-7 (Version None)
Quarter: 2004Q2

REPORT INFORMATION
  Report Type: 
  Country: None (occurrence: None)
  Receive Date: 20040426
  Receipt Date: 20030313
  Transmission Date: 20050107
  Serious: No
  Sender: FDA-Public Use
  Company Number: US-BRISTOL-MYERS SQUIBB COMPANY-12211777

PATIENT
  Age: 50 Year
  Sex: Female

DRUGS (1)
  1. PARAPLATIN [Suspect]
     Dates: start: 20030312, end: 20030312

REACTIONS (2)
  - ACCIDENTAL EXPOSURE [None]
  - KERATOCONJUNCTIVITIS SICCA [None]
